FAERS Safety Report 8004849-8 (Version None)
Quarter: 2011Q4

REPORT INFORMATION
  Report Type: 
  Country: None (occurrence: None)
  Receive Date: 20111223
  Receipt Date: 20111223
  Transmission Date: 20120403
  Serious: Yes (Other)
  Sender: FDA-Public Use
  Company Number: None

PATIENT
  Sex: Male
  Weight: 70.306 kg

DRUGS (1)
  1. LARIAM [Suspect]
     Indication: MALARIA PROPHYLAXIS
     Dosage: 1 PILL
     Route: 048
     Dates: start: 19930315, end: 19930915

REACTIONS (7)
  - TREMOR [None]
  - DISTURBANCE IN ATTENTION [None]
  - ANXIETY [None]
  - MEMORY IMPAIRMENT [None]
  - FATIGUE [None]
  - BALANCE DISORDER [None]
  - TINNITUS [None]
